FAERS Safety Report 10896540 (Version 1)
Quarter: 2015Q1

REPORT INFORMATION
  Report Type: Spontaneous
  Country: US (occurrence: None)
  Receive Date: 20150302
  Receipt Date: 20150302
  Transmission Date: 20150721
  Serious: Yes (Life-Threatening)
  Sender: FDA-Public Use
  Company Number: None

PATIENT
  Age: 69 Year
  Sex: Female
  Weight: 63.05 kg

DRUGS (11)
  1. KETOROLAC [Suspect]
     Active Substance: KETOROLAC\KETOROLAC TROMETHAMINE
     Indication: POST PROCEDURAL INFLAMMATION
     Route: 048
     Dates: start: 20150222, end: 20150222
  2. LISINOPRIL. [Concomitant]
     Active Substance: LISINOPRIL
  3. LORZONE [Concomitant]
     Active Substance: CHLORZOXAZONE
  4. MELATONIN [Concomitant]
     Active Substance: MELATONIN
  5. VITAMIN D??? [Concomitant]
  6. KLORCON M20 [Concomitant]
  7. DILTIAZEM [Concomitant]
     Active Substance: DILTIAZEM
  8. NEXIUM [Concomitant]
     Active Substance: ESOMEPRAZOLE MAGNESIUM
  9. ZOLPIDEM [Concomitant]
     Active Substance: ZOLPIDEM\ZOLPIDEM TARTRATE
  10. FENTANYL. [Concomitant]
     Active Substance: FENTANYL
  11. PRAVASTATIN [Concomitant]
     Active Substance: PRAVASTATIN\PRAVASTATIN SODIUM

REACTIONS (8)
  - Tremor [None]
  - Lip swelling [None]
  - Dyspnoea [None]
  - Chills [None]
  - Seizure [None]
  - Eye disorder [None]
  - Diarrhoea [None]
  - Nausea [None]

NARRATIVE: CASE EVENT DATE: 20150222
